FAERS Safety Report 4432893-6 (Version None)
Quarter: 2004Q3

REPORT INFORMATION
  Report Type: 
  Country: None (occurrence: None)
  Receive Date: 20040823
  Receipt Date: 20040809
  Transmission Date: 20050211
  Serious: Yes (Other)
  Sender: FDA-Public Use
  Company Number: GB-2004-029925

PATIENT

DRUGS (3)
  1. FLUDARABINE (FLUDARABINE PHOSPHATE) [Suspect]
     Dosage: 125 MG/M2,
  2. BUSULPHAN (BUSULFAN) [Suspect]
     Dosage: 14 MG/KG, ORAL
     Route: 048
  3. CYCLOPHOSPHAMIDE [Suspect]
     Dosage: 200 MG/KG, INTRAVENOUS
     Route: 042

REACTIONS (3)
  - HAEMOGLOBIN DECREASED [None]
  - PLATELET COUNT DECREASED [None]
  - VENOOCCLUSIVE LIVER DISEASE [None]
